FAERS Safety Report 5500851-6 (Version None)
Quarter: 2007Q4

REPORT INFORMATION
  Report Type: 
  Country: None (occurrence: None)
  Receive Date: 20071029
  Receipt Date: 20071026
  Transmission Date: 20080405
  Serious: Yes (Other)
  Sender: FDA-Public Use
  Company Number: B0492915A

PATIENT
  Age: 40 Year
  Sex: Female

DRUGS (4)
  1. DEROXAT [Suspect]
     Indication: DRUG USE FOR UNKNOWN INDICATION
     Dosage: 20MG PER DAY
     Route: 048
     Dates: start: 20070101, end: 20071001
  2. NOVONORM [Concomitant]
  3. ZOLPIDEM TARTRATE [Concomitant]
     Indication: INSOMNIA
  4. OGAST [Concomitant]
     Indication: GASTRIC DISORDER

REACTIONS (2)
  - HEPATIC NEOPLASM [None]
  - LIVER DISORDER [None]
